FAERS Safety Report 6412015-2 (Version None)
Quarter: 2009Q4

REPORT INFORMATION
  Report Type: 
  Country: None (occurrence: None)
  Receive Date: 20091020
  Receipt Date: 20091012
  Transmission Date: 20100525
  Serious: Yes (Hospitalization)
  Sender: FDA-Public Use
  Company Number: TPA2009A03086

PATIENT
  Age: 6 Year
  Sex: Female
  Weight: 29.0302 kg

DRUGS (2)
  1. PREVACID [Suspect]
     Indication: ABDOMINAL PAIN
     Dosage: 0.5 TAB., 15MG, 1/2 TAB, BID, PER ORAL
     Route: 048
     Dates: start: 20090930, end: 20091005
  2. PREVACID [Suspect]
     Indication: GASTROOESOPHAGEAL REFLUX DISEASE
     Dosage: 0.5 TAB., 15MG, 1/2 TAB, BID, PER ORAL
     Route: 048
     Dates: start: 20090930, end: 20091005

REACTIONS (5)
  - ABDOMINAL PAIN UPPER [None]
  - EYE DISORDER [None]
  - NYSTAGMUS [None]
  - PYREXIA [None]
  - VIRAL INFECTION [None]
